FAERS Safety Report 14646313 (Version 3)
Quarter: 2018Q4

REPORT INFORMATION
  Report Type: Spontaneous
  Country: FR (occurrence: FR)
  Receive Date: 20180316
  Receipt Date: 20181226
  Transmission Date: 20190204
  Serious: Yes (Other)
  Sender: FDA-Public Use
  Company Number: FR-MERCK KGAA-2043881

PATIENT
  Age: 67 Year
  Sex: Female

DRUGS (3)
  1. EUTHYROX [Suspect]
     Active Substance: LEVOTHYROXINE SODIUM
     Indication: POST PROCEDURAL HYPOTHYROIDISM
     Dates: start: 201706
  2. XELEVIA [Concomitant]
     Active Substance: SITAGLIPTIN PHOSPHATE
  3. EUTHYROX [Suspect]
     Active Substance: LEVOTHYROXINE SODIUM
     Dates: start: 2017

REACTIONS (17)
  - Asthenia [Recovering/Resolving]
  - Peripheral nerve injury [Not Recovered/Not Resolved]
  - Myalgia [Recovering/Resolving]
  - C-reactive protein [None]
  - Arthralgia [Recovering/Resolving]
  - Blood glucose increased [None]
  - Red blood cell sedimentation rate increased [None]
  - Muscle spasms [Recovering/Resolving]
  - Wrist deformity [Not Recovered/Not Resolved]
  - Mood swings [Recovering/Resolving]
  - Loss of personal independence in daily activities [Recovering/Resolving]
  - Dyspnoea [Recovering/Resolving]
  - Fatigue [Recovered/Resolved]
  - Affective disorder [Not Recovered/Not Resolved]
  - Glycosylated haemoglobin increased [None]
  - Hot flush [Recovering/Resolving]
  - Abdominal pain [Recovering/Resolving]

NARRATIVE: CASE EVENT DATE: 2017
